FAERS Safety Report 4804335-X (Version None)
Quarter: 2005Q4

REPORT INFORMATION
  Report Type: 
  Country: None (occurrence: None)
  Receive Date: 20051020
  Receipt Date: 20051012
  Transmission Date: 20060501
  Serious: Yes (Other)
  Sender: FDA-Public Use
  Company Number: US-BRISTOL-MYERS SQUIBB COMPANY-13142690

PATIENT
  Age: 43 Year
  Sex: Female
  Weight: 107 kg

DRUGS (2)
  1. TEQUIN INJ 10MG/ML [Suspect]
     Dosage: DOSE: 400 MG/40 ML
     Route: 031
     Dates: start: 20050829
  2. INSULIN [Concomitant]

REACTIONS (1)
  - EYE INFECTION STAPHYLOCOCCAL [None]
